FAERS Safety Report 6057239-1 (Version None)
Quarter: 2009Q1

REPORT INFORMATION
  Report Type: 
  Country: None (occurrence: None)
  Receive Date: 20090129
  Receipt Date: 20080522
  Transmission Date: 20090719
  Serious: No
  Sender: FDA-Public Use
  Company Number: A0729237A

PATIENT
  Age: 65 Year
  Sex: Female

DRUGS (4)
  1. BUPROPION HYDROCHLORIDE [Suspect]
     Indication: DEPRESSION
     Dosage: 100MG PER DAY
     Route: 048
     Dates: start: 20080401
  2. LEXAPRO [Concomitant]
  3. ASACOL [Concomitant]
  4. MICARDIS [Concomitant]

REACTIONS (1)
  - HEADACHE [None]
